FAERS Safety Report 17953085 (Version 1)
Quarter: 2020Q2

REPORT INFORMATION
  Report Type: Report from Study
  Country: US (occurrence: US)
  Receive Date: 20200627
  Receipt Date: 20200627
  Transmission Date: 20200714
  Serious: Yes (Other)
  Sender: FDA-Public Use
  Company Number: US-ROCHE-2630157

PATIENT
  Sex: Female

DRUGS (12)
  1. OCREVUS [Suspect]
     Active Substance: OCRELIZUMAB
     Indication: PRIMARY PROGRESSIVE MULTIPLE SCLEROSIS
     Route: 042
     Dates: start: 20181106, end: 20191119
  2. MAXALT [Concomitant]
     Active Substance: RIZATRIPTAN BENZOATE
     Route: 065
  3. AMITRIPTYLINE [Concomitant]
     Active Substance: AMITRIPTYLINE
     Route: 065
  4. DELTASONE [Concomitant]
     Active Substance: PREDNISONE
     Route: 065
  5. LIORESAL [Concomitant]
     Active Substance: BACLOFEN
     Route: 065
  6. IMITREX [Concomitant]
     Active Substance: SUMATRIPTAN SUCCINATE
     Route: 065
  7. VESICARE [Concomitant]
     Active Substance: SOLIFENACIN SUCCINATE
     Route: 065
  8. GLUCOPHAGE [Concomitant]
     Active Substance: METFORMIN HYDROCHLORIDE
     Route: 065
  9. SYNTHROID [Concomitant]
     Active Substance: LEVOTHYROXINE SODIUM
     Dosage: 75 MCG
     Route: 065
  10. LEXAPRO [Concomitant]
     Active Substance: ESCITALOPRAM OXALATE
     Route: 065
  11. PLEGRIDY [Concomitant]
     Active Substance: PEGINTERFERON BETA-1A
     Route: 065
  12. BENTYL [Concomitant]
     Active Substance: DICYCLOMINE HYDROCHLORIDE
     Route: 065

REACTIONS (1)
  - Urinary tract infection [Not Recovered/Not Resolved]
